FAERS Safety Report 12639181 (Version 1)
Quarter: 2016Q3

REPORT INFORMATION
  Report Type: Spontaneous
  Country: US (occurrence: US)
  Receive Date: 20160810
  Receipt Date: 20160810
  Transmission Date: 20161109
  Serious: No
  Sender: FDA-Public Use
  Company Number: US-BIOGEN-2016BI00276128

PATIENT
  Sex: Female

DRUGS (1)
  1. PLEGRIDY [Suspect]
     Active Substance: PEGINTERFERON BETA-1A
     Indication: RELAPSING-REMITTING MULTIPLE SCLEROSIS
     Route: 065

REACTIONS (6)
  - Diarrhoea [Unknown]
  - Nausea [Unknown]
  - Influenza like illness [Unknown]
  - Myalgia [Unknown]
  - Feeling abnormal [Unknown]
  - Arthralgia [Unknown]
